FAERS Safety Report 18236353 (Version 1)
Quarter: 2020Q3

REPORT INFORMATION
  Report Type: Spontaneous
  Country: US (occurrence: US)
  Receive Date: 20200907
  Receipt Date: 20200907
  Transmission Date: 20201103
  Serious: No
  Sender: FDA-Public Use
  Company Number: US-AMGEN-USASP2020142048

PATIENT
  Age: 63 Year
  Sex: Female

DRUGS (1)
  1. REPATHA [Suspect]
     Active Substance: EVOLOCUMAB
     Indication: PRODUCT USED FOR UNKNOWN INDICATION
     Dosage: 140 MILLIGRAM
     Route: 065
     Dates: start: 20200829

REACTIONS (5)
  - Rash erythematous [Not Recovered/Not Resolved]
  - Rash papular [Not Recovered/Not Resolved]
  - Dizziness [Unknown]
  - Rash pruritic [Not Recovered/Not Resolved]
  - Burning sensation [Not Recovered/Not Resolved]

NARRATIVE: CASE EVENT DATE: 202008
